FAERS Safety Report 8538683-7 (Version None)
Quarter: 2012Q3

REPORT INFORMATION
  Report Type: 
  Country: None (occurrence: None)
  Receive Date: 20120726
  Receipt Date: 20120716
  Transmission Date: 20120928
  Serious: Yes (Hospitalization)
  Sender: FDA-Public Use
  Company Number: US-BAYER-2012-072421

PATIENT
  Age: 38 Year
  Sex: Female
  Weight: 74 kg

DRUGS (22)
  1. VENTOLIN [Concomitant]
     Dosage: INHALE 1 TO 2 PUFFS, Q4HR
     Route: 045
     Dates: start: 20101026
  2. DIAZEPAM [Concomitant]
     Dosage: 5 MG, UNK
     Route: 048
     Dates: start: 20101208, end: 20120409
  3. HYDROCODONE BITARTRATE AND ACETAMINOPHEN [Concomitant]
     Dosage: 500 MG, UNK
     Route: 048
     Dates: start: 20101209, end: 20101227
  4. YASMIN [Suspect]
  5. DROSPIRENONE AND ETHINYL ESTRADIOL [Suspect]
  6. PREDNISONE [Concomitant]
     Dosage: 10 MG, BID
     Route: 048
     Dates: start: 20081015, end: 20101208
  7. DRUGS FOR OBSTRUCTIVE AIRWAY DISEASES [Concomitant]
     Dosage: 8.5 G, INHALE 2 PUFFS, Q4HR
     Route: 045
     Dates: start: 20090805, end: 20110601
  8. BENZONATATE [Concomitant]
     Dosage: 200 MG, 1 CUP TID, PRN
     Route: 048
     Dates: start: 20101022
  9. GABAPENTIN [Concomitant]
     Dosage: 300 MG, UNK
     Route: 048
     Dates: start: 20101209, end: 20101227
  10. ALPRAZOLAM [Concomitant]
  11. NICOTINE [Concomitant]
  12. AZITHROMYCIN [Concomitant]
     Dosage: 250 MG, UNK
     Route: 048
     Dates: start: 20101022, end: 20120326
  13. PSEUDOEPHEDRINE HCL [Concomitant]
     Dosage: 30 MG, 2 TEASPOONS, TID, PRN
     Route: 048
     Dates: start: 20101022
  14. TRAZODONE HYDROCHLORIDE [Concomitant]
     Dosage: 150 MG, UNK
     Route: 048
     Dates: start: 20080617, end: 20120618
  15. PREDNISONE [Concomitant]
     Dosage: 50 MG, UNK
     Dates: start: 20081015, end: 20101208
  16. CIPROFLOXACIN [Concomitant]
     Dosage: 500 MG, UNK
     Route: 048
     Dates: start: 20100716, end: 20110601
  17. ACETAMINOPHEN W/ CODEINE [Concomitant]
     Dosage: UNK
     Route: 048
     Dates: start: 20101208
  18. HYDROCODONE BITARTRATE AND ACETAMINOPHEN [Concomitant]
     Dosage: 5 MG, UNK
     Dates: start: 20101209, end: 20101227
  19. CHERATUSSIN [CODEINE,GUAIFENESIN,PSEUDOEPHEDRINE] [Concomitant]
     Dosage: 1-2 TEASPOON, HS
     Route: 048
     Dates: start: 20081015, end: 20110601
  20. ALBUTEROL [Concomitant]
     Dosage: 2.5 MG PER 3 ML
     Route: 045
     Dates: start: 20101129, end: 20101208
  21. COLCHICINE [Concomitant]
     Dosage: 0.6 MG, UNK
     Route: 048
     Dates: start: 20101217
  22. VICODIN [Concomitant]

REACTIONS (2)
  - DEEP VEIN THROMBOSIS [None]
  - PULMONARY EMBOLISM [None]
